FAERS Safety Report 20559056 (Version 1)
Quarter: 2022Q1

REPORT INFORMATION
  Report Type: Spontaneous
  Country: US (occurrence: None)
  Receive Date: 20220304
  Receipt Date: 20220304
  Transmission Date: 20220423
  Serious: Yes (Other)
  Sender: FDA-Public Use
  Company Number: None

PATIENT
  Age: 71 Year
  Sex: Female

DRUGS (1)
  1. CAPECITABINE [Suspect]
     Active Substance: CAPECITABINE
     Indication: Breast cancer
     Dosage: 1500 MG BID ORAL
     Route: 048
     Dates: start: 202107, end: 202202

REACTIONS (5)
  - Palmar-plantar erythrodysaesthesia syndrome [None]
  - Lacrimation increased [None]
  - Diarrhoea [None]
  - Drug ineffective [None]
  - Breast cancer metastatic [None]

NARRATIVE: CASE EVENT DATE: 20220101
